FAERS Safety Report 9850026 (Version 3)
Quarter: 2014Q2

REPORT INFORMATION
  Report Type: Spontaneous
  Country: US (occurrence: US)
  Receive Date: 20140128
  Receipt Date: 20140512
  Transmission Date: 20141212
  Serious: Yes (Other)
  Sender: FDA-Public Use
  Company Number: PHEH2014US001808

PATIENT
  Sex: Female

DRUGS (12)
  1. CLOZARIL [Suspect]
     Dosage: 100 MG, UNK
     Dates: start: 2004
  2. CLOZARIL [Suspect]
     Dosage: 900 MG, BID
     Dates: end: 2010
  3. CLOZAPINE [Suspect]
     Dosage: 100 MG, UNK
     Dates: start: 2004
  4. CLOZAPINE [Suspect]
     Dosage: 900 MG, BID
     Dates: start: 2004, end: 2010
  5. SYNTHROID [Concomitant]
     Dosage: UNK UKN, UNK
  6. CELEXA [Concomitant]
     Dosage: 20 MG, QD
  7. ALBUTEROL [Concomitant]
     Dosage: UNK UKN, UNK
  8. TOPROL XL [Concomitant]
     Dosage: 0.5 DF, QD
  9. ATIVAN [Concomitant]
     Dosage: 0.5 MG, UNK
  10. KEPPRA [Concomitant]
     Dosage: 500 MG, BID
  11. TOPAMAX [Concomitant]
  12. VITAMIN E [Concomitant]

REACTIONS (21)
  - Liver function test abnormal [Unknown]
  - Convulsion [Unknown]
  - Asthma [Recovered/Resolved]
  - Dyspnoea [Not Recovered/Not Resolved]
  - Drooling [Unknown]
  - Lethargy [Unknown]
  - Hypersomnia [Unknown]
  - Hallucination, auditory [Unknown]
  - Staring [Unknown]
  - Post-traumatic stress disorder [Unknown]
  - Disturbance in attention [Unknown]
  - Grip strength decreased [Unknown]
  - Liver injury [Unknown]
  - Stress urinary incontinence [Recovered/Resolved]
  - Urinary incontinence [Recovered/Resolved]
  - Hypertension [Recovered/Resolved]
  - Antipsychotic drug level increased [Unknown]
  - Fatigue [Unknown]
  - Weight increased [Recovered/Resolved]
  - Enuresis [Unknown]
  - Headache [Unknown]
